FAERS Safety Report 10671556 (Version 1)
Quarter: 2014Q4

REPORT INFORMATION
  Report Type: Spontaneous
  Country: US (occurrence: None)
  Receive Date: 20141222
  Receipt Date: 20141222
  Transmission Date: 20150529
  Serious: Yes (Disabling)
  Sender: FDA-Public Use
  Company Number: None

PATIENT
  Age: 28 Year
  Sex: Female
  Weight: 64.86 kg

DRUGS (1)
  1. MIRENA [Suspect]
     Active Substance: LEVONORGESTREL
     Dates: start: 20140421, end: 20141219

REACTIONS (12)
  - Alopecia [None]
  - Back pain [None]
  - Amnesia [None]
  - Weight increased [None]
  - Arthralgia [None]
  - Bladder disorder [None]
  - Depression [None]
  - Insomnia [None]
  - Mood swings [None]
  - Depressed level of consciousness [None]
  - Anxiety [None]
  - Confusional state [None]
